FAERS Safety Report 5610913-0 (Version None)
Quarter: 2008Q1

REPORT INFORMATION
  Report Type: 
  Country: None (occurrence: None)
  Receive Date: 20080201
  Receipt Date: 20080131
  Transmission Date: 20080703
  Serious: Yes (Death, Other)
  Sender: FDA-Public Use
  Company Number: BE-BRISTOL-MYERS SQUIBB COMPANY-14060578

PATIENT
  Sex: Female

DRUGS (1)
  1. ABILIFY [Suspect]
     Route: 064

REACTIONS (2)
  - FEEDING DISORDER NEONATAL [None]
  - MENINGITIS BACTERIAL [None]
